FAERS Safety Report 5430298-2 (Version None)
Quarter: 2007Q3

REPORT INFORMATION
  Report Type: 
  Country: None (occurrence: None)
  Receive Date: 20070828
  Receipt Date: 20070813
  Transmission Date: 20080115
  Serious: Yes (Other)
  Sender: FDA-Public Use
  Company Number: 2007RR-09348

PATIENT
  Sex: Male

DRUGS (6)
  1. CLARITHROMYCIN [Suspect]
     Indication: BRONCHOPNEUMONIA
     Dosage: 1 G, ORAL
     Route: 048
  2. CEFTRIAXONE RPG 1 G/10ML POUDRE ET SOLVANT POURDRE ET SOLVANT POUR SOL [Suspect]
     Dosage: 2 G, INTRAVENOUS
     Route: 042
  3. ACETYLSALICYLIC ACID SRT [Concomitant]
  4. CHLORTALIDONE (CHLORTALIDONE) [Concomitant]
  5. HEPARIN [Concomitant]
  6. MOLSIDOMINE RPG 4MG COMPRIME (MOLSIDOMINE) [Concomitant]

REACTIONS (1)
  - AGRANULOCYTOSIS [None]
